FAERS Safety Report 21149231 (Version 1)
Quarter: 2022Q3

REPORT INFORMATION
  Report Type: Spontaneous
  Country: US (occurrence: US)
  Receive Date: 20220729
  Receipt Date: 20220729
  Transmission Date: 20221027
  Serious: Yes (Hospitalization, Other)
  Sender: FDA-Public Use
  Company Number: US-ORGANON-O2207USA001955

PATIENT
  Sex: Male
  Weight: 74.84 kg

DRUGS (6)
  1. COZAAR [Interacting]
     Active Substance: LOSARTAN POTASSIUM
     Indication: Blood pressure abnormal
     Dosage: UNK
     Dates: start: 2018, end: 2018
  2. BISOPROLOL [Interacting]
     Active Substance: BISOPROLOL
     Indication: Blood pressure abnormal
     Dosage: UNK
     Dates: start: 2018, end: 2018
  3. BOSULIF [Suspect]
     Active Substance: BOSUTINIB MONOHYDRATE
     Indication: Leukaemia
     Dosage: UNK
     Dates: start: 2022, end: 2022
  4. BOSULIF [Suspect]
     Active Substance: BOSUTINIB MONOHYDRATE
     Dosage: UNK
     Dates: start: 20220719
  5. SPRYCEL [Suspect]
     Active Substance: DASATINIB
     Indication: Leukaemia
     Dosage: 100 MILLIGRAM ONCE A DAY
     Dates: start: 202102, end: 202103
  6. TASIGNA [Suspect]
     Active Substance: NILOTINIB
     Indication: Leukaemia
     Dosage: 2 TABLETS 2 TIMES DAILY
     Dates: start: 202103, end: 202205

REACTIONS (11)
  - Fall [Unknown]
  - Head injury [Unknown]
  - Drug interaction [Unknown]
  - Myocardial infarction [Unknown]
  - Leukaemia [Unknown]
  - Pulmonary oedema [Recovered/Resolved]
  - Productive cough [Recovered/Resolved]
  - Eye discharge [Recovered/Resolved]
  - Sinus arrhythmia [Unknown]
  - Illness [Unknown]
  - Drug ineffective [Unknown]

NARRATIVE: CASE EVENT DATE: 20180101
